FAERS Safety Report 5505270-4 (Version None)
Quarter: 2007Q4

REPORT INFORMATION
  Report Type: 
  Country: None (occurrence: None)
  Receive Date: 20071102
  Receipt Date: 20071023
  Transmission Date: 20080405
  Serious: Yes (Other)
  Sender: FDA-Public Use
  Company Number: IE-JNJFOC-20071006960

PATIENT
  Sex: Female

DRUGS (2)
  1. SPORANOX [Suspect]
     Route: 048
  2. SPORANOX [Suspect]
     Indication: ASPERGILLOSIS
     Route: 048

REACTIONS (2)
  - DENTAL CARIES [None]
  - MUSCULAR WEAKNESS [None]
